FAERS Safety Report 4771576-X (Version None)
Quarter: 2005Q3

REPORT INFORMATION
  Report Type: 
  Country: None (occurrence: None)
  Receive Date: 20050916
  Receipt Date: 20050906
  Transmission Date: 20060218
  Serious: Yes (Other)
  Sender: FDA-Public Use
  Company Number: PHHO2005CL14057

PATIENT
  Age: 6 Year
  Sex: Male

DRUGS (1)
  1. CATAFLAM [Suspect]
     Dosage: 5 ML, Q12H
     Route: 048

REACTIONS (2)
  - FACE OEDEMA [None]
  - URTICARIA GENERALISED [None]
